FAERS Safety Report 7564216-8 (Version None)
Quarter: 2011Q2

REPORT INFORMATION
  Report Type: 
  Country: None (occurrence: None)
  Receive Date: 20110622
  Receipt Date: 20110608
  Transmission Date: 20111010
  Serious: Yes (Death, Hospitalization)
  Sender: FDA-Public Use
  Company Number: PHHY2011CZ51328

PATIENT

DRUGS (4)
  1. OFLOXACIN [Concomitant]
  2. EXJADE [Suspect]
     Indication: IRON OVERLOAD
     Dosage: 1500 MG, DAILY
     Route: 048
  3. ITRACONAZOLE [Concomitant]
  4. ALLOPURINOL [Concomitant]

REACTIONS (2)
  - PNEUMONIA [None]
  - CARDIAC FAILURE [None]
